FAERS Safety Report 8250755-3 (Version None)
Quarter: 2012Q1

REPORT INFORMATION
  Report Type: 
  Country: None (occurrence: None)
  Receive Date: 20120319
  Receipt Date: 20090724
  Transmission Date: 20120608
  Serious: Yes (Other)
  Sender: FDA-Public Use
  Company Number: PHEH2009US08141

PATIENT

DRUGS (1)
  1. TEKTURNA [Suspect]

REACTIONS (2)
  - THROAT TIGHTNESS [None]
  - ANGIOEDEMA [None]
